FAERS Safety Report 20201004 (Version 2)
Quarter: 2022Q2

REPORT INFORMATION
  Report Type: Spontaneous
  Country: US (occurrence: US)
  Receive Date: 20211217
  Receipt Date: 20220506
  Transmission Date: 20220720
  Serious: Yes (Other)
  Sender: FDA-Public Use
  Company Number: US-TEVA-2021-US-1988093

PATIENT
  Sex: Female

DRUGS (4)
  1. NUVIGIL [Interacting]
     Active Substance: ARMODAFINIL
     Route: 065
  2. ETHINYL ESTRADIOL\NORGESTIMATE [Interacting]
     Active Substance: ETHINYL ESTRADIOL\NORGESTIMATE
     Route: 065
  3. PROVIGIL [Interacting]
     Active Substance: MODAFINIL
     Route: 065
  4. ZOLPIDEM [Interacting]
     Active Substance: ZOLPIDEM TARTRATE
     Route: 065

REACTIONS (2)
  - Maternal exposure during pregnancy [Unknown]
  - Drug interaction [Unknown]
